FAERS Safety Report 7406144-4 (Version None)
Quarter: 2011Q2

REPORT INFORMATION
  Report Type: 
  Country: None (occurrence: None)
  Receive Date: 20110401
  Receipt Date: 20110322
  Transmission Date: 20111010
  Serious: Yes (Hospitalization)
  Sender: FDA-Public Use
  Company Number: UTC-005706

PATIENT
  Age: 69 Year
  Sex: Male
  Weight: 37.18 kg

DRUGS (4)
  1. REMODULIN [Suspect]
     Indication: PULMONARY ARTERIAL HYPERTENSION
     Dosage: 46.08 UG/KG (0.032 UG/KG,1 IN 1 MIN),INTRAVENOUS
     Route: 042
     Dates: start: 20100914
  2. COUMADIN [Concomitant]
  3. REVATIO [Concomitant]
  4. DIURETICS (DIURETICS) [Concomitant]

REACTIONS (6)
  - OXYGEN SATURATION DECREASED [None]
  - HEART RATE INCREASED [None]
  - CHILLS [None]
  - OEDEMA PERIPHERAL [None]
  - BRONCHITIS [None]
  - CARDIAC FAILURE [None]
